FAERS Safety Report 16902724 (Version 2)
Quarter: 2019Q4

REPORT INFORMATION
  Report Type: Spontaneous
  Country: FR (occurrence: FR)
  Receive Date: 20191010
  Receipt Date: 20191209
  Transmission Date: 20200122
  Serious: Yes (Life-Threatening, Hospitalization, Other)
  Sender: FDA-Public Use
  Company Number: FR-AUROBINDO-AUR-APL-2019-065586

PATIENT
  Age: 38 Year
  Sex: Female

DRUGS (4)
  1. BLEU PATENTE V [Suspect]
     Active Substance: PATENT BLUE V
     Indication: LYMPHATIC MAPPING
     Dosage: 1 DOSAGE FORM
     Route: 058
     Dates: start: 20180627, end: 20180627
  2. PROFENID [Suspect]
     Active Substance: KETOPROFEN
     Indication: PAIN
     Dosage: UNK
     Route: 042
     Dates: start: 20180627, end: 20180627
  3. ACUPAN [Suspect]
     Active Substance: NEFOPAM HYDROCHLORIDE
     Indication: PAIN
     Dosage: UNK
     Route: 042
     Dates: start: 20180627, end: 20180627
  4. PARACETAMOL [Suspect]
     Active Substance: ACETAMINOPHEN
     Indication: PAIN
     Dosage: UNK
     Route: 042
     Dates: start: 20180627, end: 20180627

REACTIONS (1)
  - Anaphylactic shock [Recovered/Resolved]

NARRATIVE: CASE EVENT DATE: 20180627
